FAERS Safety Report 14852831 (Version 1)
Quarter: 2018Q2

REPORT INFORMATION
  Report Type: Spontaneous
  Country: ES (occurrence: ES)
  Receive Date: 20180507
  Receipt Date: 20180507
  Transmission Date: 20180711
  Serious: Yes (Other)
  Sender: FDA-Public Use
  Company Number: ES-ABBVIE-18P-144-2346402-00

PATIENT
  Sex: Male
  Weight: 95 kg

DRUGS (3)
  1. IBUPROFENO (ARGININA) CINFA [Concomitant]
     Indication: CATARRH
     Dosage: 400 MG GRANULES FOR ORAL SOLUTION EFG , 30 ENVELOPES; ONCE, THREE CONSECUTIVE DAYS
     Dates: start: 20180321, end: 20180323
  2. MAVIRET [Suspect]
     Active Substance: GLECAPREVIR\PIBRENTASVIR
     Indication: HEPATITIS NON-A NON-B
     Dosage: 500 MG ONCE A DAY; 100 MG/40 MG FILM COATED TABLETS, 84 TABLETS
     Route: 048
     Dates: start: 20180416
  3. FRENADOL COMPLEX [Concomitant]
     Active Substance: ACETAMINOPHEN\ASCORBIC ACID\CAFFEINE CITRATE\CHLORPHENIRAMINE\DEXTROMETHORPHAN
     Indication: CATARRH
     Dosage: 10 ENVELOPES
     Dates: start: 20180324, end: 20180324

REACTIONS (2)
  - Rash [Unknown]
  - Hypersensitivity [Unknown]

NARRATIVE: CASE EVENT DATE: 20180421
